FAERS Safety Report 23640760 (Version 1)
Quarter: 2024Q1

REPORT INFORMATION
  Report Type: Spontaneous
  Country: GB (occurrence: GB)
  Receive Date: 20240318
  Receipt Date: 20240318
  Transmission Date: 20240409
  Serious: Yes (Other)
  Sender: FDA-Public Use
  Company Number: None

PATIENT
  Sex: Female

DRUGS (2)
  1. OZEMPIC [Suspect]
     Active Substance: SEMAGLUTIDE
     Dosage: 0.25 MG
  2. OZEMPIC [Suspect]
     Active Substance: SEMAGLUTIDE
     Indication: Diabetes mellitus
     Dosage: 0.5 MG

REACTIONS (7)
  - Balance disorder [Unknown]
  - Energy increased [Unknown]
  - Pain in extremity [Unknown]
  - Pre-existing condition improved [Unknown]
  - Gait disturbance [Unknown]
  - Mood altered [Unknown]
  - Product availability issue [Unknown]
